FAERS Safety Report 24560527 (Version 1)
Quarter: 2024Q4

REPORT INFORMATION
  Report Type: Spontaneous
  Country: BE (occurrence: BE)
  Receive Date: 20241029
  Receipt Date: 20241029
  Transmission Date: 20250115
  Serious: Yes (Other)
  Sender: TEVA
  Company Number: None

PATIENT
  Age: 1 Month
  Sex: Male

DRUGS (1)
  1. OXALIPLATIN [Suspect]
     Active Substance: OXALIPLATIN
     Indication: Product used for unknown indication
     Route: 042
     Dates: start: 20240925, end: 20240925

REACTIONS (8)
  - Hypersensitivity [Recovered/Resolved]
  - Speech disorder [Recovered/Resolved]
  - Eye pruritus [Recovered/Resolved]
  - Oxygen saturation decreased [Recovered/Resolved]
  - Rash [Recovered/Resolved]
  - Tongue disorder [Recovered/Resolved]
  - Pharyngeal swelling [Recovered/Resolved]
  - Hypertensive crisis [Recovered/Resolved]

NARRATIVE: CASE EVENT DATE: 20240925
